FAERS Safety Report 25211508 (Version 1)
Quarter: 2025Q2

REPORT INFORMATION
  Report Type: Spontaneous
  Country: JP (occurrence: JP)
  Receive Date: 20250418
  Receipt Date: 20250418
  Transmission Date: 20250717
  Serious: Yes (Hospitalization, Other)
  Sender: NOVITIUM PHARMA
  Company Number: JP-NOVITIUMPHARMA-2025JPNVP00894

PATIENT
  Age: 78 Year
  Sex: Male
  Weight: 65 kg

DRUGS (7)
  1. LEVOFLOXACIN [Suspect]
     Active Substance: LEVOFLOXACIN
     Indication: Disseminated Bacillus Calmette-Guerin infection
  2. ISONIAZID [Concomitant]
     Active Substance: ISONIAZID
     Indication: Disseminated Bacillus Calmette-Guerin infection
  3. RIFAMPIN [Concomitant]
     Active Substance: RIFAMPIN
     Indication: Disseminated Bacillus Calmette-Guerin infection
  4. RIFAMPIN [Concomitant]
     Active Substance: RIFAMPIN
  5. RIFAMPIN [Concomitant]
     Active Substance: RIFAMPIN
  6. CEFEPIME [Concomitant]
     Active Substance: CEFEPIME HYDROCHLORIDE
     Indication: Disseminated Bacillus Calmette-Guerin infection
  7. STREPTOMYCIN [Concomitant]
     Active Substance: STREPTOMYCIN SULFATE
     Indication: Disseminated Bacillus Calmette-Guerin infection

REACTIONS (1)
  - Haematotoxicity [Not Recovered/Not Resolved]
